FAERS Safety Report 7072210-9 (Version None)
Quarter: 2010Q4

REPORT INFORMATION
  Report Type: 
  Country: None (occurrence: None)
  Receive Date: 20101029
  Receipt Date: 20091215
  Transmission Date: 20110411
  Serious: No
  Sender: FDA-Public Use
  Company Number: A0835947A

PATIENT
  Age: 69 Year
  Sex: Female

DRUGS (2)
  1. ADVAIR DISKUS 100/50 [Suspect]
     Indication: WHEEZING
     Route: 065
  2. DUONEB [Suspect]
     Indication: WHEEZING
     Route: 065

REACTIONS (1)
  - DRUG INEFFECTIVE [None]
